FAERS Safety Report 8077775-6 (Version None)
Quarter: 2012Q1

REPORT INFORMATION
  Report Type: 
  Country: None (occurrence: None)
  Receive Date: 20120127
  Receipt Date: 20120120
  Transmission Date: 20120608
  Serious: Yes (Hospitalization)
  Sender: FDA-Public Use
  Company Number: CHPA2012US001783

PATIENT
  Sex: Male

DRUGS (2)
  1. EXCEDRIN TENSION HEADACHE CAPLETS [Concomitant]
     Indication: HEADACHE
     Dosage: UNK DF, UNK
  2. EXCEDRIN EXTRA STRENGTH TABLETS [Suspect]
     Indication: HEADACHE
     Dosage: 2 DF, PRN
     Route: 048

REACTIONS (3)
  - DRUG INEFFECTIVE [None]
  - VOLVULUS [None]
  - ABDOMINAL PAIN UPPER [None]
